FAERS Safety Report 8512359-4 (Version None)
Quarter: 2012Q3

REPORT INFORMATION
  Report Type: 
  Country: None (occurrence: None)
  Receive Date: 20120716
  Receipt Date: 20120712
  Transmission Date: 20120928
  Serious: Yes (Hospitalization)
  Sender: FDA-Public Use
  Company Number: PHHY2012GB060065

PATIENT
  Age: 33 Year
  Sex: Female

DRUGS (2)
  1. OLANZAPINE [Concomitant]
     Dosage: 20 MG, DAILY
  2. CLOZAPINE [Suspect]
     Indication: SCHIZOPHRENIA, PARANOID TYPE
     Dosage: 350 MG, DAILY

REACTIONS (18)
  - COLON GANGRENE [None]
  - ABDOMINAL RIGIDITY [None]
  - MULTI-ORGAN FAILURE [None]
  - PSEUDOMEMBRANOUS COLITIS [None]
  - VOMITING [None]
  - TENDERNESS [None]
  - HEART RATE INCREASED [None]
  - DIARRHOEA [None]
  - ABDOMINAL PAIN [None]
  - LOSS OF CONSCIOUSNESS [None]
  - GASTROINTESTINAL SOUNDS ABNORMAL [None]
  - COLITIS ISCHAEMIC [None]
  - VASCULITIS GASTROINTESTINAL [None]
  - AMYLASE INCREASED [None]
  - BEHCET'S SYNDROME [None]
  - GASTROINTESTINAL NECROSIS [None]
  - BLOOD PRESSURE DECREASED [None]
  - BLOOD CREATININE INCREASED [None]
